FAERS Safety Report 5974250-7 (Version None)
Quarter: 2008Q4

REPORT INFORMATION
  Report Type: 
  Country: None (occurrence: None)
  Receive Date: 20081201
  Receipt Date: 20081125
  Transmission Date: 20090506
  Serious: Yes (Hospitalization, Other)
  Sender: FDA-Public Use
  Company Number: FR-PFIZER INC-2008089061

PATIENT
  Sex: Female
  Weight: 60 kg

DRUGS (7)
  1. LYRICA [Suspect]
     Indication: NEURALGIA
     Route: 048
     Dates: start: 20071221, end: 20080501
  2. TROSPIUM CHLORIDE [Concomitant]
     Indication: NEUROGENIC BLADDER
     Route: 048
  3. MONO-TILDIEM - SLOW RELEASE [Concomitant]
     Route: 048
  4. MONO-TILDIEM [Concomitant]
     Indication: HYPERTENSION
     Route: 048
  5. HYZAAR [Concomitant]
     Indication: HYPERTENSION
  6. HYPERIUM [Concomitant]
     Indication: HYPERTENSION
  7. TRAMADOL HYDROCHLORIDE [Concomitant]
     Indication: CULTURE STOOL POSITIVE

REACTIONS (16)
  - AREFLEXIA [None]
  - BLOOD CHLORIDE DECREASED [None]
  - BLOOD PRESSURE ABNORMAL [None]
  - BODY TEMPERATURE DECREASED [None]
  - C-REACTIVE PROTEIN INCREASED [None]
  - CONSTIPATION [None]
  - CULTURE STOOL POSITIVE [None]
  - DERMATITIS BULLOUS [None]
  - DIARRHOEA [None]
  - FACTOR V DEFICIENCY [None]
  - LYMPHADENOPATHY [None]
  - RED BLOOD CELL SEDIMENTATION RATE INCREASED [None]
  - REFLEXES ABNORMAL [None]
  - TOXIC SKIN ERUPTION [None]
  - URINARY TRACT INFECTION [None]
  - WEIGHT INCREASED [None]
